FAERS Safety Report 17051901 (Version 1)
Quarter: 2019Q4

REPORT INFORMATION
  Report Type: Spontaneous
  Country: GB (occurrence: GB)
  Receive Date: 20191120
  Receipt Date: 20191120
  Transmission Date: 20200122
  Serious: Yes (Hospitalization)
  Sender: FDA-Public Use
  Company Number: GB-TEVA-2019-GB-1138869

PATIENT
  Age: 71 Year

DRUGS (7)
  1. AMLODIPINE [Concomitant]
     Active Substance: AMLODIPINE BESYLATE
  2. CASSIA [Concomitant]
  3. NOVOMIX [Concomitant]
     Active Substance: INSULIN ASPART
     Dosage: 100UNITS/ML IN 3ML CARTIDGE
  4. ACETYLSALICYLIC ACID [Concomitant]
     Active Substance: ASPIRIN
  5. TRIMETHOPRIM. [Concomitant]
     Active Substance: TRIMETHOPRIM
  6. BISOPROLOL [Suspect]
     Active Substance: BISOPROLOL
     Dates: end: 20180716
  7. RANITIDINE. [Concomitant]
     Active Substance: RANITIDINE

REACTIONS (1)
  - Nodal arrhythmia [Recovered/Resolved]
